FAERS Safety Report 5541801-6 (Version None)
Quarter: 2007Q4

REPORT INFORMATION
  Report Type: 
  Country: None (occurrence: None)
  Receive Date: 20071210
  Receipt Date: 20071129
  Transmission Date: 20080405
  Serious: Yes (Hospitalization)
  Sender: FDA-Public Use
  Company Number: FR-JNJFOC-20071108120

PATIENT
  Age: 71 Year
  Sex: Female
  Weight: 51 kg

DRUGS (4)
  1. CAELYX [Suspect]
     Indication: BREAST CANCER METASTATIC
     Route: 042
     Dates: start: 20070516, end: 20071003
  2. AVASTIN [Concomitant]
     Indication: BREAST CANCER METASTATIC
     Route: 042
     Dates: start: 20070516, end: 20071003
  3. CELIPROLOL [Concomitant]
     Indication: HYPERTENSION
     Route: 048
  4. LEVOTHYROX [Concomitant]
     Indication: THYROID NEOPLASM
     Route: 048

REACTIONS (2)
  - CARDIAC FAILURE [None]
  - LEFT VENTRICULAR DYSFUNCTION [None]
